FAERS Safety Report 9486004 (Version 1)
Quarter: 2013Q3

REPORT INFORMATION
  Report Type: Spontaneous
  Country: US (occurrence: None)
  Receive Date: 20130826
  Receipt Date: 20130826
  Transmission Date: 20140515
  Serious: Yes (Other)
  Sender: FDA-Public Use
  Company Number: 1308-1067

PATIENT
  Age: 81 Year
  Sex: Female

DRUGS (9)
  1. EYLEA (AFLIBERCEPT)(INJECTION)(AFLIBERCEPT) [Suspect]
     Indication: AGE-RELATED MACULAR DEGENERATION
     Dosage: INTRAVITREAL
     Dates: start: 20121025
  2. CRESTOR (ROSUVASTATIN CALCIUM) [Concomitant]
  3. HCTZ (HYDROCHLOROTHIAZIDE) [Concomitant]
  4. ESTRADIOL (ESTRADIOL) (GEL) [Concomitant]
  5. FISH OIL (FISH OIL) [Concomitant]
  6. CLARITIN (GLICLAZIDE) [Concomitant]
  7. ASPIRIN (ACETYLSALICYLIC ACID) [Concomitant]
  8. ALLEGRA [Concomitant]
  9. VITAMIN D (ERGOCALCIFEROL) [Concomitant]

REACTIONS (1)
  - Non-infectious endophthalmitis [None]
